FAERS Safety Report 9119220 (Version 1)
Quarter: 2013Q1

REPORT INFORMATION
  Report Type: Report from Study
  Country: JP (occurrence: JP)
  Receive Date: 20130207
  Receipt Date: 20130207
  Transmission Date: 20140127
  Serious: Yes (Hospitalization, Other)
  Sender: FDA-Public Use
  Company Number: JP-VERTEX PHARMACEUTICAL INC.-2012-021638

PATIENT
  Age: 60 Year
  Sex: Female

DRUGS (11)
  1. VX-950 (TELAPREVIR) [Suspect]
     Indication: CHRONIC HEPATITIS C
     Dosage: 1500 MG, QD
     Route: 048
     Dates: start: 20120801, end: 20120821
  2. VX-950 (TELAPREVIR) [Suspect]
     Dosage: 1000 MG, QD
     Route: 048
     Dates: start: 20120822, end: 20120824
  3. VX-950 (TELAPREVIR) [Suspect]
     Dosage: 500 MG, QD
     Route: 048
     Dates: start: 20120825, end: 20121023
  4. RIBAVIRIN [Suspect]
     Indication: CHRONIC HEPATITIS C
     Dosage: 600 MG, QD
     Route: 048
     Dates: start: 20120801, end: 20120814
  5. RIBAVIRIN [Suspect]
     Dosage: 200 MG, QD
     Route: 048
     Dates: start: 20120815, end: 20121207
  6. PEGINTERFERON ALFA-2B [Suspect]
     Indication: CHRONIC HEPATITIS C
     Dosage: 1.6 ?G/KG, QW
     Route: 058
     Dates: start: 20120801, end: 20120815
  7. PEGINTERFERON ALFA-2B [Suspect]
     Dosage: 1.3 ?G/KG, QW
     Route: 058
     Dates: start: 20120822, end: 20121024
  8. FERON [Suspect]
     Indication: CHRONIC HEPATITIS C
     Dosage: 600 DF, QD
     Route: 042
     Dates: start: 20121107, end: 20121121
  9. FERON [Suspect]
     Dosage: 600 DF, TID
     Route: 042
     Dates: start: 20121123, end: 20121207
  10. LOCHOL                             /01224502/ [Concomitant]
     Dosage: 20 MG, QD
     Route: 048
     Dates: end: 20121031
  11. SELBEX [Concomitant]
     Dosage: 150 MG, QD
     Route: 048
     Dates: start: 20120814

REACTIONS (2)
  - Dizziness [Recovered/Resolved]
  - Haemoglobin decreased [Recovered/Resolved]
